APPROVED DRUG PRODUCT: NEOPROFEN
Active Ingredient: IBUPROFEN LYSINE
Strength: EQ 20MG BASE/2ML (EQ 10MG BASE/ML)
Dosage Form/Route: INJECTABLE;INTRAVENOUS
Application: N021903 | Product #001 | TE Code: AP
Applicant: RECORDATI RARE DISEASES INC
Approved: Apr 13, 2006 | RLD: Yes | RS: Yes | Type: RX

PATENTS:
Patent 8415337 | Expires: Mar 2, 2032